FAERS Safety Report 6955067-3 (Version None)
Quarter: 2010Q3

REPORT INFORMATION
  Report Type: 
  Country: None (occurrence: None)
  Receive Date: 20100830
  Receipt Date: 20100825
  Transmission Date: 20110219
  Serious: Yes (Life-Threatening, Hospitalization)
  Sender: FDA-Public Use
  Company Number: US-WYE-H15674510

PATIENT
  Age: 56 Year
  Sex: Female
  Weight: 68.1 kg

DRUGS (1)
  1. ADVIL LIQUI-GELS [Suspect]
     Indication: ANALGESIC THERAPY
     Route: 048
     Dates: start: 20100306, end: 20100306

REACTIONS (5)
  - DYSPNOEA [None]
  - HYPERSENSITIVITY [None]
  - LARYNGEAL OEDEMA [None]
  - SWELLING FACE [None]
  - SWOLLEN TONGUE [None]
